FAERS Safety Report 9783273 (Version 1)
Quarter: 2013Q4

REPORT INFORMATION
  Report Type: Spontaneous
  Country: IT (occurrence: IT)
  Receive Date: 20131226
  Receipt Date: 20131226
  Transmission Date: 20140711
  Serious: Yes (Death)
  Sender: FDA-Public Use
  Company Number: IT-PFIZER INC-2013366893

PATIENT
  Age: 35 Year
  Sex: Male

DRUGS (2)
  1. ZOLOFT [Suspect]
  2. SEROQUEL [Suspect]

REACTIONS (1)
  - Completed suicide [Fatal]
